FAERS Safety Report 9713629 (Version 1)
Quarter: 2013Q4

REPORT INFORMATION
  Report Type: Spontaneous
  Country: US (occurrence: US)
  Receive Date: 20131126
  Receipt Date: 20131126
  Transmission Date: 20140711
  Serious: No
  Sender: FDA-Public Use
  Company Number: US-BAXTER-2013BAX045045

PATIENT
  Age: 25 Year
  Sex: Female

DRUGS (1)
  1. GENTAMICIN, SULFATE_GENTAMICIN, SULFATE 1.00 MG/ML_SOLUTION FOR INFUSI [Suspect]
     Indication: THERAPEUTIC PROCEDURE
     Route: 042
     Dates: start: 20131108, end: 20131108

REACTIONS (3)
  - Liquid product physical issue [Recovered/Resolved]
  - Poor quality drug administered [Recovered/Resolved]
  - No adverse event [Recovered/Resolved]
